FAERS Safety Report 5634745-2 (Version None)
Quarter: 2008Q1

REPORT INFORMATION
  Report Type: 
  Country: None (occurrence: None)
  Receive Date: 20080221
  Receipt Date: 20080221
  Transmission Date: 20080703
  Serious: Yes (Hospitalization)
  Sender: FDA-Public Use
  Company Number: None

PATIENT
  Sex: Female
  Weight: 68.2 kg

DRUGS (2)
  1. BEVACIZUMAB , GENENTECH [Suspect]
     Dosage: 10MG/KG QOW X 4 WEEKS IV
     Route: 042
     Dates: start: 20071011, end: 20080103
  2. ETOPOSIDE [Suspect]
     Dosage: 50MG ALT WITH 100MG QD X 21 DAYS PO
     Route: 048
     Dates: start: 20071011, end: 20080103

REACTIONS (4)
  - DEHYDRATION [None]
  - LOWER RESPIRATORY TRACT INFECTION [None]
  - UPPER RESPIRATORY TRACT INFECTION [None]
  - URINARY TRACT INFECTION [None]
